FAERS Safety Report 5810275-X (Version None)
Quarter: 2008Q3

REPORT INFORMATION
  Report Type: 
  Country: None (occurrence: None)
  Receive Date: 20080715
  Receipt Date: 20080206
  Transmission Date: 20090109
  Serious: No
  Sender: FDA-Public Use
  Company Number: A0707849A

PATIENT
  Age: 7 Year
  Sex: Female

DRUGS (3)
  1. IMITREX [Suspect]
     Indication: MIGRAINE
     Dosage: 25MG SEE DOSAGE TEXT
     Route: 048
     Dates: start: 20080128, end: 20080201
  2. TYLENOL W/ CODEINE [Concomitant]
  3. OMNICEF [Concomitant]

REACTIONS (2)
  - DIZZINESS [None]
  - OFF LABEL USE [None]
